FAERS Safety Report 5711579-1 (Version None)
Quarter: 2008Q2

REPORT INFORMATION
  Report Type: 
  Country: None (occurrence: None)
  Receive Date: 20080416
  Receipt Date: 20080402
  Transmission Date: 20081010
  Serious: Yes (Hospitalization, Other)
  Sender: FDA-Public Use
  Company Number: 100#08#2008-01809

PATIENT
  Age: 57 Year
  Sex: Male

DRUGS (1)
  1. ATENOLOL [Suspect]
     Indication: DRUG USE FOR UNKNOWN INDICATION
     Dosage: (AT ONCE) ORAL
     Route: 048

REACTIONS (6)
  - ARTERIOSPASM CORONARY [None]
  - HYPOTENSION [None]
  - INTENTIONAL OVERDOSE [None]
  - PRINZMETAL ANGINA [None]
  - SINUS BRADYCARDIA [None]
  - SUICIDE ATTEMPT [None]
